FAERS Safety Report 4801540-3 (Version None)
Quarter: 2005Q4

REPORT INFORMATION
  Report Type: 
  Country: None (occurrence: None)
  Receive Date: 20051018
  Receipt Date: 20050110
  Transmission Date: 20060501
  Serious: No
  Sender: FDA-Public Use
  Company Number: US-BRISTOL-MYERS SQUIBB COMPANY-12820486

PATIENT
  Age: 53 Year
  Sex: Male
  Weight: 86 kg

DRUGS (3)
  1. CAPITROL [Suspect]
     Indication: SEBORRHOEIC DERMATITIS
     Route: 061
  2. ALLEGRA [Concomitant]
  3. BETAMETHASONE VALERATE [Concomitant]
     Route: 061

REACTIONS (2)
  - HAIR COLOUR CHANGES [None]
  - HAIR METAL TEST [None]
